FAERS Safety Report 5901099-3 (Version None)
Quarter: 2008Q3

REPORT INFORMATION
  Report Type: 
  Country: None (occurrence: None)
  Receive Date: 20080929
  Receipt Date: 20080917
  Transmission Date: 20090109
  Serious: Yes (Other)
  Sender: FDA-Public Use
  Company Number: US-ROCHE-564809

PATIENT
  Sex: Female

DRUGS (9)
  1. PEG-INTERFERON A-2A (RO 25-8310) [Suspect]
     Dosage: FORM REPORTED AS: PRE-FILLED SYRINGE.
     Route: 065
     Dates: start: 20080423
  2. RIBAVIRIN [Suspect]
     Route: 065
     Dates: start: 20080423
  3. RIBAVIRIN [Suspect]
     Dosage: DOSAGE: 400 MG IN THE MORNING AND 600 MG IN THE EVENING
     Route: 065
  4. PROZAC [Concomitant]
     Indication: DEPRESSION
  5. VISTARIL [Concomitant]
  6. DALMANE [Concomitant]
  7. MULTI-VITAMIN [Concomitant]
  8. LORTAB [Concomitant]
  9. DIOVAN [Concomitant]
     Indication: BLOOD PRESSURE INCREASED
     Dates: start: 20080804

REACTIONS (6)
  - BACK PAIN [None]
  - CATARACT [None]
  - HYPERHIDROSIS [None]
  - INFLUENZA LIKE ILLNESS [None]
  - INSOMNIA [None]
  - VISION BLURRED [None]
